FAERS Safety Report 6681032-X (Version None)
Quarter: 2010Q2

REPORT INFORMATION
  Report Type: 
  Country: None (occurrence: None)
  Receive Date: 20100414
  Receipt Date: 20100330
  Transmission Date: 20101027
  Serious: Yes (Death, Other)
  Sender: FDA-Public Use
  Company Number: US-JNJFOC-20100304862

PATIENT
  Sex: Male

DRUGS (6)
  1. TRAMADOL HYDROCHLORIDE [Suspect]
     Indication: DRUG USE FOR UNKNOWN INDICATION
     Dosage: 3 TIMES A DAY OR 4 TIMES A DAY
     Route: 065
  2. FENTANYL [Suspect]
     Indication: DRUG USE FOR UNKNOWN INDICATION
     Dosage: 1 AN HOUR
     Route: 062
  3. LIDODERM [Suspect]
     Indication: ARTHRALGIA
     Dosage: 2-3 PATCHES A DAY
     Route: 061
  4. NEURONTIN [Suspect]
     Indication: DRUG USE FOR UNKNOWN INDICATION
     Dosage: 3 PER DAY
     Route: 065
  5. OXYCODONE [Suspect]
     Indication: DRUG USE FOR UNKNOWN INDICATION
     Dosage: 2 PER DAY
     Route: 065
  6. CORTICOSTEROID NOS [Concomitant]

REACTIONS (11)
  - ABASIA [None]
  - CARDIAC DISORDER [None]
  - DEATH [None]
  - ENURESIS [None]
  - FLUID RETENTION [None]
  - FOAMING AT MOUTH [None]
  - MULTI-ORGAN FAILURE [None]
  - OVERDOSE [None]
  - RESPIRATORY ARREST [None]
  - SOMNOLENCE [None]
  - VOMITING [None]
